FAERS Safety Report 5766601-3 (Version None)
Quarter: 2008Q2

REPORT INFORMATION
  Report Type: 
  Country: None (occurrence: None)
  Receive Date: 20080612
  Receipt Date: 20080605
  Transmission Date: 20081010
  Serious: Yes (Death, Hospitalization)
  Sender: FDA-Public Use
  Company Number: FR-WYE-G01645308

PATIENT
  Sex: Female

DRUGS (8)
  1. EFFEXOR [Suspect]
     Dosage: OVERDOSE; AMOUNT : UNSPECIFIED
     Route: 048
     Dates: start: 20080316, end: 20080316
  2. MORPHINE [Suspect]
     Dosage: OVERDOSE; AMOUNT : UNSPECIFIED
     Dates: start: 20080316, end: 20080316
  3. PANTOPRAZOLE SODIUM [Concomitant]
  4. DEPAMIDE [Concomitant]
     Dosage: 1500 MG TOTAL DAILY
  5. STABLON [Concomitant]
     Dosage: 37.5 MG TOTAL DAILY
  6. TRIMEPRAZINE TAB [Concomitant]
     Route: 048
  7. NOCTAMID [Suspect]
     Dosage: OVERDOSE; AMOUNT : UNSPECIFIED
     Route: 048
     Dates: start: 20080316, end: 20080316
  8. MEPRONIZINE [Concomitant]
     Route: 048

REACTIONS (14)
  - ANAEMIA [None]
  - APNOEA [None]
  - COMA [None]
  - COMPLETED SUICIDE [None]
  - CYTOLYTIC HEPATITIS [None]
  - DEEP VEIN THROMBOSIS [None]
  - DEPRESSED LEVEL OF CONSCIOUSNESS [None]
  - GASTROOESOPHAGITIS [None]
  - MULTI-ORGAN FAILURE [None]
  - MULTIPLE DRUG OVERDOSE INTENTIONAL [None]
  - OESOPHAGEAL CANDIDIASIS [None]
  - RHABDOMYOLYSIS [None]
  - SEPTIC SHOCK [None]
  - TOXIC SHOCK SYNDROME STAPHYLOCOCCAL [None]
